FAERS Safety Report 5065756-6 (Version None)
Quarter: 2006Q3

REPORT INFORMATION
  Report Type: 
  Country: None (occurrence: None)
  Receive Date: 20060731
  Receipt Date: 20060308
  Transmission Date: 20061208
  Serious: Yes (Hospitalization)
  Sender: FDA-Public Use
  Company Number: US-ROCHE-439424

PATIENT
  Age: 58 Year
  Sex: Male

DRUGS (3)
  1. CAPECITABINE [Suspect]
     Indication: RECTAL CANCER
     Dosage: DOSE GIVEN EVERY 28 DAYS
     Route: 048
     Dates: start: 20050505
  2. AVASTIN [Suspect]
     Indication: RECTAL CANCER
     Route: 042
     Dates: start: 20050505
  3. OXALIPLATIN [Suspect]
     Indication: RECTAL CANCER
     Route: 042
     Dates: start: 20050505

REACTIONS (3)
  - BLOOD UREA DECREASED [None]
  - CATHETER RELATED INFECTION [None]
  - STAPHYLOCOCCAL INFECTION [None]
